FAERS Safety Report 8126082-1 (Version None)
Quarter: 2012Q1

REPORT INFORMATION
  Report Type: 
  Country: None (occurrence: None)
  Receive Date: 20120209
  Receipt Date: 20120201
  Transmission Date: 20120608
  Serious: Yes (Hospitalization)
  Sender: FDA-Public Use
  Company Number: PHEH2012US002856

PATIENT
  Sex: Female
  Weight: 69.841 kg

DRUGS (9)
  1. FUROSEMIDE [Concomitant]
     Dosage: UNK UKN, UNK
  2. BYSTOLIC [Concomitant]
     Dosage: UNK UKN, UNK
  3. CYMBALTA [Concomitant]
     Dosage: UNK UKN, UNK
  4. TEKTURNA [Suspect]
     Indication: HYPERTENSION
     Dosage: 300 MG, QD
     Dates: start: 20111209, end: 20120131
  5. NEXIUM [Concomitant]
     Dosage: UNK UKN, UNK
  6. HYDROCHLOROTHIAZIDE [Concomitant]
     Dosage: UNK UKN, UNK
  7. BENICAR [Concomitant]
     Dosage: UNK UKN, UNK
  8. INSULIN HUMAN [Concomitant]
     Dosage: UNK UKN, UNK
  9. OMEGA-3-ACID ETHYL ESTERS [Concomitant]
     Dosage: UNK UKN, UNK

REACTIONS (3)
  - HYPOTENSION [None]
  - ELECTROLYTE IMBALANCE [None]
  - FALL [None]
